FAERS Safety Report 15277745 (Version 1)
Quarter: 2018Q4

REPORT INFORMATION
  Report Type: Spontaneous
  Country: FR (occurrence: FR)
  Receive Date: 20180814
  Receipt Date: 20180814
  Transmission Date: 20190204
  Serious: Yes (Hospitalization)
  Sender: FDA-Public Use
  Company Number: FR-TEVA-2018-FR-940887

PATIENT
  Age: 31 Year
  Sex: Female
  Weight: 65 kg

DRUGS (3)
  1. ALPRAZOLAM ALPHARMA [Suspect]
     Active Substance: ALPRAZOLAM
     Indication: GENERALISED ANXIETY DISORDER
     Route: 048
  2. TRAMADOL BASE [Suspect]
     Active Substance: TRAMADOL
     Indication: NECK PAIN
     Dosage: IMPORTANTE SANS PLUS D^INFORMATION
     Route: 048
     Dates: start: 20180612
  3. CHLORHYDRATE DE VENLAFAXINE [Concomitant]
     Indication: DEPRESSION
     Route: 048

REACTIONS (1)
  - Generalised tonic-clonic seizure [Recovered/Resolved]

NARRATIVE: CASE EVENT DATE: 20180612
